FAERS Safety Report 4435215-X (Version None)
Quarter: 2004Q3

REPORT INFORMATION
  Report Type: 
  Country: None (occurrence: None)
  Receive Date: 20040826
  Receipt Date: 20040817
  Transmission Date: 20050211
  Serious: Yes (Life-Threatening, Hospitalization)
  Sender: FDA-Public Use
  Company Number: VIS10164.2001

PATIENT
  Age: 62 Year
  Sex: Female
  Weight: 65.7716 kg

DRUGS (1)
  1. VISICOL [Suspect]
     Indication: COLONOSCOPY
     Dosage: 30 G ONCE PO
     Route: 048
     Dates: start: 20040504, end: 20040504

REACTIONS (4)
  - DIARRHOEA [None]
  - HYPOKALAEMIA [None]
  - HYPONATRAEMIA [None]
  - TREATMENT NONCOMPLIANCE [None]
